FAERS Safety Report 21977222 (Version 1)
Quarter: 2023Q1

REPORT INFORMATION
  Report Type: Spontaneous
  Country: JP (occurrence: JP)
  Receive Date: 20230210
  Receipt Date: 20230210
  Transmission Date: 20230417
  Serious: Yes (Other)
  Sender: FDA-Public Use
  Company Number: JP-TAIHO-2023-000803

PATIENT
  Age: 80 Year
  Sex: Male

DRUGS (5)
  1. ABRAXANE [Suspect]
     Active Substance: PACLITAXEL
     Indication: Squamous cell carcinoma of lung
     Dosage: ON DAYS 1, 8, AND 15 OF EACH 21-DAY CYCLE; 2 CYCLES?DAILY DOSE: 100 MILLIGRAM(S)/SQ. METER
     Route: 041
  2. ABRAXANE [Suspect]
     Active Substance: PACLITAXEL
     Dosage: ON DAYS 1 AND 8 OF EACH 21-DAY CYCLE, FROM CYCLE 3?DAILY DOSE: 80 MILLIGRAM(S)/SQ. METER
     Route: 041
  3. KEYTRUDA [Suspect]
     Active Substance: PEMBROLIZUMAB
     Indication: Squamous cell carcinoma of lung
     Dosage: ON DAY 1?DAILY DOSE: 200 MILLIGRAM(S)
  4. CARBOPLATIN [Concomitant]
     Active Substance: CARBOPLATIN
     Indication: Squamous cell carcinoma of lung
     Dosage: FREQUENCY : ONCE 3 WEEKS?DOSE, AUC = 6; ON DAY 1; 2 CYCLES
  5. CARBOPLATIN [Concomitant]
     Active Substance: CARBOPLATIN
     Dosage: FREQUENCY : ONCE 3 WEEKS?DOSE, AUC = 4.5; ON DAY 1; FROM CYCLE 3

REACTIONS (5)
  - Febrile neutropenia [Unknown]
  - Pneumonia [Unknown]
  - Type 1 diabetes mellitus [Unknown]
  - Immune-mediated adrenal insufficiency [Unknown]
  - Malignant neoplasm progression [Unknown]
